FAERS Safety Report 6068667-2 (Version None)
Quarter: 2009Q1

REPORT INFORMATION
  Report Type: 
  Country: None (occurrence: None)
  Receive Date: 20090206
  Receipt Date: 20090129
  Transmission Date: 20090719
  Serious: Yes (Congenital Anomaly)
  Sender: FDA-Public Use
  Company Number: A0766945A

PATIENT

DRUGS (1)
  1. LAMOTRIGINE [Suspect]
     Indication: BIPOLAR DISORDER

REACTIONS (2)
  - CONGENITAL CHOROID PLEXUS CYST [None]
  - DRUG EXPOSURE DURING PREGNANCY [None]
